FAERS Safety Report 6741968-8 (Version None)
Quarter: 2010Q2

REPORT INFORMATION
  Report Type: 
  Country: None (occurrence: None)
  Receive Date: 20100526
  Receipt Date: 20100521
  Transmission Date: 20101027
  Serious: Yes (Other)
  Sender: FDA-Public Use
  Company Number: CH-ROCHE-704906

PATIENT
  Sex: Female

DRUGS (6)
  1. APRANAX [Suspect]
     Indication: DRUG USE FOR UNKNOWN INDICATION
     Route: 065
  2. RITUXIMAB [Suspect]
     Indication: RHEUMATOID ARTHRITIS
     Route: 042
     Dates: start: 20080219, end: 20080304
  3. ENBREL [Concomitant]
     Indication: RHEUMATOID ARTHRITIS
     Dates: start: 20100215, end: 20100430
  4. HUMIRA [Concomitant]
     Indication: RHEUMATOID ARTHRITIS
     Dates: start: 20090624, end: 20091214
  5. ARAVA [Concomitant]
     Indication: RHEUMATOID ARTHRITIS
     Dates: start: 20060206, end: 20060424
  6. METHOTREXAT [Concomitant]
     Indication: RHEUMATOID ARTHRITIS
     Dates: start: 20000601, end: 20060201

REACTIONS (3)
  - BREAST CANCER [None]
  - DIARRHOEA [None]
  - DRUG INTOLERANCE [None]
